FAERS Safety Report 10711749 (Version 1)
Quarter: 2015Q1

REPORT INFORMATION
  Report Type: Spontaneous
  Country: US (occurrence: US)
  Receive Date: 20150114
  Receipt Date: 20150114
  Transmission Date: 20150721
  Serious: Yes (Hospitalization)
  Sender: FDA-Public Use
  Company Number: US-INCYTE CORPORATION-2015IN000070

PATIENT
  Age: 72 Year
  Sex: Male

DRUGS (10)
  1. JAKAFI [Suspect]
     Active Substance: RUXOLITINIB
     Dosage: 15 MG, BID
     Route: 048
     Dates: start: 20130829
  2. CALCIUM CITRATE [Concomitant]
     Active Substance: CALCIUM CITRATE
  3. ALLEGRA [Concomitant]
     Active Substance: FEXOFENADINE HYDROCHLORIDE
  4. CARDURA [Concomitant]
     Active Substance: DOXAZOSIN MESYLATE
  5. AMIODARONE [Concomitant]
     Active Substance: AMIODARONE
  6. FUROSEMIDE. [Concomitant]
     Active Substance: FUROSEMIDE
  7. FISH OIL [Concomitant]
     Active Substance: FISH OIL
  8. COLCHICINE. [Concomitant]
     Active Substance: COLCHICINE
  9. DILAUDID [Concomitant]
     Active Substance: HYDROMORPHONE HYDROCHLORIDE
  10. HYDRALAZINE [Concomitant]
     Active Substance: HYDRALAZINE HYDROCHLORIDE

REACTIONS (1)
  - Atrial fibrillation [Not Recovered/Not Resolved]

NARRATIVE: CASE EVENT DATE: 20150109
